FAERS Safety Report 5720785-1 (Version None)
Quarter: 2008Q2

REPORT INFORMATION
  Report Type: 
  Country: None (occurrence: None)
  Receive Date: 20080429
  Receipt Date: 20080428
  Transmission Date: 20081010
  Serious: Yes (Hospitalization)
  Sender: FDA-Public Use
  Company Number: FR-WYE-G01458108

PATIENT
  Age: 70 Year
  Sex: Male

DRUGS (1)
  1. ADVIL [Suspect]
     Dosage: 2 TABLETS TOTAL DAILY
     Route: 048
     Dates: start: 20071016, end: 20071016

REACTIONS (1)
  - OESOPHAGEAL VARICES HAEMORRHAGE [None]
